FAERS Safety Report 19016857 (Version 3)
Quarter: 2021Q2

REPORT INFORMATION
  Report Type: Report from Study
  Country: None (occurrence: GB)
  Receive Date: 20210317
  Receipt Date: 20210526
  Transmission Date: 20210717
  Serious: Yes (Hospitalization)
  Sender: FDA-Public Use
  Company Number: GB-ABBVIE-21K-167-3815964-00

PATIENT
  Age: 32 Year
  Sex: Female

DRUGS (17)
  1. AZATHIOPRINE. [Suspect]
     Active Substance: AZATHIOPRINE
     Indication: COLITIS ULCERATIVE
     Route: 048
     Dates: start: 20160511, end: 20181204
  2. TRAMADOL. [Concomitant]
     Active Substance: TRAMADOL
     Indication: SICKLE CELL DISEASE
     Route: 048
     Dates: start: 2016
  3. LIDOCAINE. [Concomitant]
     Active Substance: LIDOCAINE
     Indication: SICKLE CELL DISEASE
     Dosage: AS NEEDED
     Route: 062
     Dates: start: 2016
  4. PREDNISOLONE. [Concomitant]
     Active Substance: PREDNISOLONE
     Route: 048
     Dates: start: 20191204, end: 20200212
  5. REMSIMA [Concomitant]
     Active Substance: INFLIXIMAB
     Indication: COLITIS ULCERATIVE
     Route: 041
     Dates: start: 20200204
  6. FOLIC ACID. [Concomitant]
     Active Substance: FOLIC ACID
     Indication: SICKLE CELL DISEASE
     Route: 048
     Dates: start: 201407
  7. PREDNISOLONE. [Concomitant]
     Active Substance: PREDNISOLONE
     Indication: COLITIS ULCERATIVE
     Route: 048
     Dates: start: 201604
  8. ASACOL [Concomitant]
     Active Substance: MESALAMINE
     Indication: COLITIS ULCERATIVE
     Route: 048
     Dates: start: 201407
  9. PENICILLIN V [Concomitant]
     Active Substance: PENICILLIN V
     Indication: SICKLE CELL DISEASE
     Route: 048
     Dates: start: 201312
  10. HUMIRA [Suspect]
     Active Substance: ADALIMUMAB
     Indication: COLITIS ULCERATIVE
     Route: 058
     Dates: start: 20151025, end: 20160313
  11. PARACETAMOL [Concomitant]
     Active Substance: ACETAMINOPHEN
     Indication: SICKLE CELL DISEASE
     Route: 048
     Dates: start: 2016
  12. PREDNISOLONE. [Concomitant]
     Active Substance: PREDNISOLONE
     Route: 048
     Dates: start: 20200213
  13. PREDNISOLONE. [Concomitant]
     Active Substance: PREDNISOLONE
     Dosage: 40 REDUSING COURSE MILLIGRAM
     Route: 048
     Dates: start: 20180808, end: 20181003
  14. COCODAMOL [Concomitant]
     Active Substance: ACETAMINOPHEN\CODEINE PHOSPHATE
     Indication: SICKLE CELL DISEASE
     Dosage: AS NEEDED  ,30/500 MILLIGRAM
     Route: 048
     Dates: start: 2017
  15. ALLOPURINOL. [Concomitant]
     Active Substance: ALLOPURINOL
     Indication: COLITIS ULCERATIVE
     Route: 048
     Dates: start: 201605
  16. CODEINE [Concomitant]
     Active Substance: CODEINE
     Indication: SICKLE CELL DISEASE
     Dosage: AS NEEDED
     Route: 048
     Dates: start: 201312
  17. OXYCODONE [Concomitant]
     Active Substance: OXYCODONE
     Indication: SICKLE CELL DISEASE
     Dosage: AS NEEDED
     Route: 048
     Dates: start: 201603

REACTIONS (1)
  - Sickle cell anaemia with crisis [Not Recovered/Not Resolved]

NARRATIVE: CASE EVENT DATE: 20210307
